FAERS Safety Report 23264893 (Version 3)
Quarter: 2025Q2

REPORT INFORMATION
  Report Type: Spontaneous
  Country: PL (occurrence: PL)
  Receive Date: 20231206
  Receipt Date: 20250621
  Transmission Date: 20250717
  Serious: Yes (Other)
  Sender: UCB
  Company Number: PL-UCBSA-2023056563

PATIENT
  Sex: Female

DRUGS (9)
  1. LEVETIRACETAM [Suspect]
     Active Substance: LEVETIRACETAM
     Indication: Severe myoclonic epilepsy of infancy
  2. LEVETIRACETAM [Suspect]
     Active Substance: LEVETIRACETAM
     Indication: Off label use
  3. FENFLURAMINE HYDROCHLORIDE [Suspect]
     Active Substance: FENFLURAMINE HYDROCHLORIDE
     Indication: Severe myoclonic epilepsy of infancy
     Dates: start: 202303
  4. THIOPENTAL [Concomitant]
     Active Substance: THIOPENTAL
     Indication: Product used for unknown indication
  5. STIRIPENTOL [Concomitant]
     Active Substance: STIRIPENTOL
     Indication: Product used for unknown indication
  6. MIDAZOLAM HYDROCHLORIDE [Concomitant]
     Active Substance: MIDAZOLAM HYDROCHLORIDE
     Indication: Petit mal epilepsy
  7. CLOBAZAM [Concomitant]
     Active Substance: CLOBAZAM
     Indication: Product used for unknown indication
  8. RELSED [Concomitant]
     Indication: Product used for unknown indication
  9. VALPROIC ACID [Concomitant]
     Active Substance: VALPROIC ACID
     Indication: Product used for unknown indication

REACTIONS (13)
  - Seizure [Recovered/Resolved]
  - Hemiplegia [Unknown]
  - Generalised tonic-clonic seizure [Unknown]
  - Liver injury [Unknown]
  - Petit mal epilepsy [Unknown]
  - Epilepsy [Unknown]
  - Postictal paralysis [Unknown]
  - Clonic convulsion [Unknown]
  - Myoclonus [Unknown]
  - Oxygen saturation decreased [Unknown]
  - Decreased appetite [Recovered/Resolved]
  - Drug ineffective [Unknown]
  - Off label use [Unknown]
